FAERS Safety Report 9208883 (Version 1)
Quarter: 2013Q1

REPORT INFORMATION
  Report Type: Spontaneous
  Country: US (occurrence: None)
  Receive Date: 20120817
  Receipt Date: 20120817
  Transmission Date: 20140127
  Serious: Yes (Hospitalization, Other)
  Sender: FDA-Public Use
  Company Number: ADR-2012-00975

PATIENT
  Age: 52 Year
  Sex: Female

DRUGS (2)
  1. LIORESAL INTRATHECAL(BACLOFEN INJECTION) 2000 MCG/ML [Suspect]
     Indication: MUSCLE SPASTICITY
  2. LIORESAL INTRATHECAL(BACLOFEN INJECTION) 2000 MCG/ML [Suspect]
     Indication: SPINAL CORD INJURY

REACTIONS (6)
  - Muscle spasticity [None]
  - Intracranial hypotension [None]
  - Pruritus [None]
  - Musculoskeletal stiffness [None]
  - Drug withdrawal syndrome [None]
  - Implant site effusion [None]
